FAERS Safety Report 20582553 (Version 3)
Quarter: 2022Q2

REPORT INFORMATION
  Report Type: Spontaneous
  Country: CA (occurrence: CA)
  Receive Date: 20220311
  Receipt Date: 20220418
  Transmission Date: 20220721
  Serious: Yes (Other)
  Sender: FDA-Public Use
  Company Number: CA-SA-SAC20220310000465

PATIENT
  Sex: Female

DRUGS (63)
  1. BISACODYL [Suspect]
     Active Substance: BISACODYL
  2. ALPRAZOLAM [Suspect]
     Active Substance: ALPRAZOLAM
     Route: 055
  3. ALPRAZOLAM [Suspect]
     Active Substance: ALPRAZOLAM
  4. AMOXICILLIN TRIHYDRATE [Suspect]
     Active Substance: AMOXICILLIN
  5. ATORVASTATIN CALCIUM [Suspect]
     Active Substance: ATORVASTATIN CALCIUM
  6. ATORVASTATIN CALCIUM [Suspect]
     Active Substance: ATORVASTATIN CALCIUM
  7. BETAMETHASONE [Suspect]
     Active Substance: BETAMETHASONE
  8. BETAMETHASONE [Suspect]
     Active Substance: BETAMETHASONE
  9. BETAMETHASONE VALERATE [Suspect]
     Active Substance: BETAMETHASONE VALERATE
  10. BETAMETHASONE VALERATE [Suspect]
     Active Substance: BETAMETHASONE VALERATE
  11. BUDESONIDE [Suspect]
     Active Substance: BUDESONIDE
  12. CALCIUM CARBONATE [Suspect]
     Active Substance: CALCIUM CARBONATE
  13. CETIRIZINE HYDROCHLORIDE [Suspect]
     Active Substance: CETIRIZINE HYDROCHLORIDE
     Indication: Allergy prophylaxis
  14. CLARITHROMYCIN [Suspect]
     Active Substance: CLARITHROMYCIN
  15. CLOTRIMAZOLE [Suspect]
     Active Substance: CLOTRIMAZOLE
  16. DESONIDE [Suspect]
     Active Substance: DESONIDE
  17. DIPHENHYDRAMINE HYDROCHLORIDE [Suspect]
     Active Substance: DIPHENHYDRAMINE HYDROCHLORIDE
  18. FLUTICASONE FUROATE [Suspect]
     Active Substance: FLUTICASONE FUROATE
  19. GLYCERIN [Suspect]
     Active Substance: GLYCERIN
     Route: 048
  20. HYDROCHLOROTHIAZIDE [Suspect]
     Active Substance: HYDROCHLOROTHIAZIDE
     Route: 005
  21. HYDROMORPHONE HYDROCHLORIDE [Suspect]
     Active Substance: HYDROMORPHONE HYDROCHLORIDE
  22. CARBOXYMETHYLCELLULOSE SODIUM [Suspect]
     Active Substance: CARBOXYMETHYLCELLULOSE SODIUM
     Route: 047
  23. MAGNESIUM SULFATE [Suspect]
     Active Substance: MAGNESIUM SULFATE
  24. CHOLECALCIFEROL [Suspect]
     Active Substance: CHOLECALCIFEROL
     Indication: Product used for unknown indication
     Route: 065
  25. MESALAMINE [Suspect]
     Active Substance: MESALAMINE
  26. METRONIDAZOLE [Suspect]
     Active Substance: METRONIDAZOLE
  27. METRONIDAZOLE [Suspect]
     Active Substance: METRONIDAZOLE
  28. MORPHINE SULFATE [Suspect]
     Active Substance: MORPHINE SULFATE
  29. NADOLOL [Suspect]
     Active Substance: NADOLOL
  30. NICOTINE POLACRILEX [Suspect]
     Active Substance: NICOTINE
  31. PANTOPRAZOLE SODIUM [Suspect]
     Active Substance: PANTOPRAZOLE SODIUM
  32. AZITHROMYCIN [Suspect]
     Active Substance: AZITHROMYCIN
  33. PREDNISONE [Suspect]
     Active Substance: PREDNISONE
  34. PREGABALIN [Suspect]
     Active Substance: PREGABALIN
  35. SULFAMETHOXAZOLE\TRIMETHOPRIM [Suspect]
     Active Substance: SULFAMETHOXAZOLE\TRIMETHOPRIM
  36. TRIAMCINOLONE ACETONIDE [Suspect]
     Active Substance: TRIAMCINOLONE ACETONIDE
     Route: 014
  37. ASPIRIN [Suspect]
     Active Substance: ASPIRIN
  38. MUPIROCIN [Suspect]
     Active Substance: MUPIROCIN
     Indication: Product used for unknown indication
     Route: 061
  39. NICODERM CQ [Suspect]
     Active Substance: NICOTINE
  40. FLUOCINOLONE ACETONIDE\NEOMYCIN SULFATE\POLYMYXIN B SULFATE [Suspect]
     Active Substance: FLUOCINOLONE ACETONIDE\NEOMYCIN SULFATE\POLYMYXIN B SULFATE
  41. SODIUM CHLORIDE [Suspect]
     Active Substance: SODIUM CHLORIDE
  42. ERTAPENEM SODIUM [Suspect]
     Active Substance: ERTAPENEM SODIUM
  43. ADALIMUMAB [Suspect]
     Active Substance: ADALIMUMAB
     Indication: Crohn^s disease
     Route: 058
  44. BUDESONIDE [Suspect]
     Active Substance: BUDESONIDE
     Indication: Product used for unknown indication
     Dosage: NOT SPECIFIED
     Route: 065
  45. NEOMYCIN [Suspect]
     Active Substance: NEOMYCIN
  46. VITAMIN D3 [Suspect]
     Active Substance: CHOLECALCIFEROL
  47. POLYMYXIN B SULFATE [Suspect]
     Active Substance: POLYMYXIN B SULFATE
  48. GRAMICIDIN [Suspect]
     Active Substance: GRAMICIDIN
  49. CALCIUM CITRATE [Suspect]
     Active Substance: CALCIUM CITRATE
  50. ATROPINE SULFATE\DIFENOXIN HYDROCHLORIDE [Suspect]
     Active Substance: ATROPINE SULFATE\DIFENOXIN HYDROCHLORIDE
     Route: 048
  51. CUPRIC OXIDE [Suspect]
     Active Substance: CUPRIC OXIDE
  52. RETINOL [Concomitant]
     Active Substance: RETINOL
  53. ZEAXANTHIN [Suspect]
     Active Substance: ZEAXANTHIN
  54. .ALPHA.-TOCOPHEROL ACETATE, D- [Suspect]
     Active Substance: .ALPHA.-TOCOPHEROL ACETATE, D-
  55. XANTOFYL PALMITATE [Suspect]
     Active Substance: XANTOFYL PALMITATE
  56. VITAMIN D NOS [Suspect]
     Active Substance: VITAMIN D NOS
  57. ACETAMINOPHEN [Suspect]
     Active Substance: ACETAMINOPHEN
  58. AMOXICILLIN [Suspect]
     Active Substance: AMOXICILLIN
  59. ATROPINE SULFATE [Suspect]
     Active Substance: ATROPINE SULFATE
  60. ICHTHAMMOL\ZINC OXIDE [Suspect]
     Active Substance: ICHTHAMMOL\ZINC OXIDE
  61. POLYETHYLENE GLYCOL 3350\POTASSIUM CHLORIDE\SODIUM BICARBONATE\SODIUM [Suspect]
     Active Substance: POLYETHYLENE GLYCOL 3350\POTASSIUM CHLORIDE\SODIUM BICARBONATE\SODIUM CHLORIDE
  62. DIFENOXIN HYDROCHLORIDE [Suspect]
     Active Substance: DIFENOXIN HYDROCHLORIDE
  63. VALSARTAN [Concomitant]
     Active Substance: VALSARTAN

REACTIONS (2)
  - Macular degeneration [Unknown]
  - Drug ineffective [Unknown]
